FAERS Safety Report 6463943-3 (Version None)
Quarter: 2009Q4

REPORT INFORMATION
  Report Type: 
  Country: None (occurrence: None)
  Receive Date: 20091201
  Receipt Date: 20091125
  Transmission Date: 20100525
  Serious: Yes (Hospitalization)
  Sender: FDA-Public Use
  Company Number: US-ROCHE-670397

PATIENT
  Sex: Female
  Weight: 49.9 kg

DRUGS (5)
  1. CAPECITABINE [Suspect]
     Indication: GASTRIC CANCER
     Dosage: FREQUENCY: BID ON DAYS 1-14
     Route: 048
     Dates: start: 20090420
  2. CAPECITABINE [Suspect]
     Dosage: FREQ: QD.
     Route: 048
     Dates: start: 20091117
  3. BEVACIZUMAB [Suspect]
     Indication: GASTRIC CANCER
     Dosage: DOSE AMOUNT: 15 MG/KG.
     Route: 042
     Dates: start: 20090420, end: 20091117
  4. OXALIPLATIN [Suspect]
     Indication: GASTRIC CANCER
     Dosage: DOSING AMOUNT: 130 MG/M2
     Route: 042
     Dates: start: 20090420, end: 20091116
  5. LASIX [Concomitant]
     Dosage: FREQ : QD
     Dates: start: 20091117, end: 20091120

REACTIONS (1)
  - HIP FRACTURE [None]
